FAERS Safety Report 4912546-8 (Version None)
Quarter: 2006Q1

REPORT INFORMATION
  Report Type: 
  Country: None (occurrence: None)
  Receive Date: 20060215
  Receipt Date: 20060208
  Transmission Date: 20060701
  Serious: Yes (Hospitalization)
  Sender: FDA-Public Use
  Company Number: US-ABBOTT-06P-163-0324362-00

PATIENT
  Age: 4 Month
  Sex: Male

DRUGS (1)
  1. OMNICEF [Suspect]
     Indication: DRUG USE FOR UNKNOWN INDICATION
     Route: 048
     Dates: start: 20060201, end: 20060203

REACTIONS (2)
  - FAECES DISCOLOURED [None]
  - MUCOUS STOOLS [None]
